FAERS Safety Report 8826351 (Version 4)
Quarter: 2012Q4

REPORT INFORMATION
  Report Type: 
  Country: US (occurrence: US)
  Receive Date: 20121008
  Receipt Date: 20121128
  Transmission Date: 20130627
  Serious: Yes (Other)
  Sender: FDA-Public Use
  Company Number: US-PFIZER INC-2012247785

PATIENT
  Age: 74 Year
  Sex: Female
  Weight: 72.56 kg

DRUGS (3)
  1. ADVIL [Suspect]
     Indication: PULLED MUSCLE
     Dosage: 400 mg, on and off four times daily
     Route: 048
  2. ADVIL [Suspect]
     Dosage: 400 mg, 4x/day
     Route: 048
     Dates: start: 201209
  3. DILTIAZEM HCL [Suspect]
     Indication: BLOOD PRESSURE HIGH
     Dosage: 240 mg, daily

REACTIONS (1)
  - Hypertension [Not Recovered/Not Resolved]
